FAERS Safety Report 20465680 (Version 1)
Quarter: 2022Q1

REPORT INFORMATION
  Report Type: Spontaneous
  Country: AT (occurrence: AT)
  Receive Date: 20220212
  Receipt Date: 20220212
  Transmission Date: 20220423
  Serious: Yes (Other)
  Sender: FDA-Public Use
  Company Number: AT-ROCHE-2769966

PATIENT
  Age: 58 Year
  Sex: Female
  Weight: 71 kg

DRUGS (29)
  1. TRASTUZUMAB [Suspect]
     Active Substance: TRASTUZUMAB
     Indication: HER2 positive breast cancer
     Dosage: 568 MILLIGRAM, Q3WK
     Route: 041
     Dates: start: 20190403, end: 20190403
  2. TRASTUZUMAB [Suspect]
     Active Substance: TRASTUZUMAB
     Dosage: 426 MILLIGRAM, Q3WK
     Route: 041
     Dates: start: 20190429, end: 20190725
  3. TRASTUZUMAB [Suspect]
     Active Substance: TRASTUZUMAB
     Dosage: 426 MILLIGRAM, Q3WK
     Route: 041
     Dates: start: 20190918
  4. PROLIA [Suspect]
     Active Substance: DENOSUMAB
     Indication: Product used for unknown indication
     Dosage: UNK
     Route: 065
     Dates: end: 20190809
  5. PACLITAXEL [Suspect]
     Active Substance: PACLITAXEL
     Indication: HER2 positive breast cancer
     Dosage: 143.11 MILLIGRAM, QWK
     Route: 042
     Dates: start: 20190403, end: 20190624
  6. PERTUZUMAB [Suspect]
     Active Substance: PERTUZUMAB
     Indication: HER2 positive breast cancer
     Dosage: 840 MILLIGRAM, Q3WK
     Route: 042
     Dates: start: 20190403, end: 20190403
  7. PERTUZUMAB [Suspect]
     Active Substance: PERTUZUMAB
     Dosage: 420 MILLIGRAM, Q3WK (ON 18/SEP/2019: MOST RECENT DOSE OF PERTUZUMAB PRIOR TO THE EVENT)
     Route: 042
     Dates: start: 20190918, end: 20210511
  8. PERTUZUMAB [Suspect]
     Active Substance: PERTUZUMAB
     Dosage: 420 MILLIGRAM, Q3WK
     Route: 042
     Dates: start: 20190429, end: 20190725
  9. VITAMIN B1-6-12 [CYANOCOBALAMIN;PYRIDOXINE HYDROCHLORIDE;THIAMINE HYDR [Concomitant]
     Indication: Wound infection
     Dosage: 1 DOSAGE FORM
     Route: 048
     Dates: start: 20210803, end: 20211007
  10. KCL [Concomitant]
     Active Substance: POTASSIUM CHLORIDE
     Dosage: 600 MILLIGRAM
     Route: 048
     Dates: start: 20191023
  11. NOVALGIN (METAMIZOLE SODIUM) [Concomitant]
     Active Substance: METAMIZOLE SODIUM
     Dosage: 500 MILLIGRAM
     Route: 048
     Dates: start: 20191009, end: 20191023
  12. NOVALGIN (METAMIZOLE SODIUM) [Concomitant]
     Active Substance: METAMIZOLE SODIUM
     Dosage: 500 MILLIGRAM
     Route: 048
     Dates: start: 20191023
  13. NOVALGIN (METAMIZOLE SODIUM) [Concomitant]
     Active Substance: METAMIZOLE SODIUM
     Dosage: 500 MILLIGRAM
     Route: 048
     Dates: start: 20210824
  14. DOXYCYCLINE [Concomitant]
     Active Substance: DOXYCYCLINE
     Indication: Wound infection
     Dosage: 200 MILLIGRAM, QD
     Route: 048
     Dates: start: 20210923, end: 20211006
  15. LYRICA [Concomitant]
     Active Substance: PREGABALIN
     Indication: Wound infection
     Dosage: 75 MILLIGRAM, QD
     Route: 048
     Dates: start: 20210923
  16. ASCORBIC ACID;CALCIUM PHOSPHATE;CITRIC ACID;COLECALCIFEROL [Concomitant]
     Dosage: 500MG/800IE
     Route: 048
     Dates: start: 20190809
  17. DEXABENE [Concomitant]
     Dosage: 12 MILLIGRAM, QWK
     Route: 042
     Dates: start: 20190403, end: 20190629
  18. LEVOTHYROXINE SODIUM [Concomitant]
     Active Substance: LEVOTHYROXINE SODIUM
     Dosage: 50 MICROGRAM, QD
     Route: 048
  19. COMIRNATY [Concomitant]
     Active Substance: TOZINAMERAN
     Dosage: 0.3 MILLILITER
     Route: 030
     Dates: start: 20210216, end: 20210216
  20. LOVENOX [Concomitant]
     Active Substance: ENOXAPARIN SODIUM
     Dosage: UNK
     Route: 058
     Dates: start: 20190809
  21. FENAKUT [Concomitant]
     Dosage: UNK
     Route: 042
     Dates: start: 20190403, end: 20190624
  22. KYTRIL [Concomitant]
     Active Substance: GRANISETRON HYDROCHLORIDE
     Dosage: UNK
     Dates: start: 20190403, end: 20190624
  23. KYTRIL [Concomitant]
     Active Substance: GRANISETRON HYDROCHLORIDE
     Dosage: 1 AMPULE
     Route: 042
     Dates: start: 20211014
  24. EMSER [EMSER SALT] [Concomitant]
     Dosage: UNK
     Dates: start: 20191009
  25. EMEND [Concomitant]
     Active Substance: APREPITANT
     Dosage: 80 MILLIGRAM, QD
     Route: 048
     Dates: start: 20211014, end: 20211016
  26. ESOMEPRAZOLE [Concomitant]
     Active Substance: ESOMEPRAZOLE
     Dosage: 40 MILLIGRAM, QD
     Route: 048
     Dates: start: 20190809
  27. DEXAMETHASONE [Concomitant]
     Active Substance: DEXAMETHASONE
     Dosage: 12 MILLIGRAM
     Route: 048
     Dates: start: 20211014, end: 20211016
  28. RANITIDINE HYDROCHLORIDE [Concomitant]
     Active Substance: RANITIDINE HYDROCHLORIDE
     Dosage: UNK
     Route: 042
     Dates: start: 20190403, end: 20190624
  29. ACETAMINOPHEN\CODEINE PHOSPHATE [Concomitant]
     Active Substance: ACETAMINOPHEN\CODEINE PHOSPHATE
     Dosage: UNK
     Route: 048
     Dates: start: 20191009

REACTIONS (2)
  - Wound infection [Recovered/Resolved]
  - Off label use [Unknown]

NARRATIVE: CASE EVENT DATE: 20190403
